FAERS Safety Report 4470762-6 (Version None)
Quarter: 2004Q4

REPORT INFORMATION
  Report Type: 
  Country: None (occurrence: None)
  Receive Date: 20041006
  Receipt Date: 20041004
  Transmission Date: 20050328
  Serious: Yes (Hospitalization)
  Sender: FDA-Public Use
  Company Number: THQ2003A00241

PATIENT
  Age: 51 Year
  Sex: Female

DRUGS (3)
  1. LANZOR (LANSOPRAZOLE) (CAPSULES) [Suspect]
     Route: 048
  2. TENORDATE (NIF-TEN ^IMPERIAL^) [Concomitant]
  3. HYPERIUM (RILMENIDINE) [Concomitant]

REACTIONS (14)
  - ANOREXIA [None]
  - AUTOIMMUNE DISORDER [None]
  - BLOOD BICARBONATE DECREASED [None]
  - BLOOD SODIUM DECREASED [None]
  - GENERAL PHYSICAL CONDITION ABNORMAL [None]
  - HYPOKALAEMIA [None]
  - NAUSEA [None]
  - NEPHRITIS INTERSTITIAL [None]
  - NEPHROLITHIASIS [None]
  - RENAL FAILURE ACUTE [None]
  - RENAL FAILURE CHRONIC [None]
  - RENAL TUBULAR DISORDER [None]
  - VOMITING [None]
  - WEIGHT DECREASED [None]
